FAERS Safety Report 6083729-1 (Version None)
Quarter: 2009Q1

REPORT INFORMATION
  Report Type: 
  Country: None (occurrence: None)
  Receive Date: 20090219
  Receipt Date: 20090216
  Transmission Date: 20090719
  Serious: Yes (Other)
  Sender: FDA-Public Use
  Company Number: PHHY2009BE04913

PATIENT
  Age: 75 Year
  Sex: Male

DRUGS (3)
  1. EXELON [Suspect]
     Indication: DEMENTIA ALZHEIMER'S TYPE
     Dosage: 5 CM^2, UNK
     Route: 062
  2. EXELON [Suspect]
     Dosage: 10 CM^2, UNK
  3. EXELON [Suspect]
     Dosage: 5 CM^2

REACTIONS (2)
  - MUSCLE CONTRACTIONS INVOLUNTARY [None]
  - MYOCLONUS [None]
